FAERS Safety Report 13081029 (Version 6)
Quarter: 2018Q2

REPORT INFORMATION
  Report Type: Spontaneous
  Country: US (occurrence: US)
  Receive Date: 20170103
  Receipt Date: 20180410
  Transmission Date: 20180711
  Serious: No
  Sender: FDA-Public Use
  Company Number: US-PFIZER INC-2016601479

PATIENT
  Age: 70 Year
  Sex: Female

DRUGS (2)
  1. XELJANZ [Suspect]
     Active Substance: TOFACITINIB CITRATE
     Dosage: 5 MG, UNK
  2. XELJANZ [Suspect]
     Active Substance: TOFACITINIB CITRATE
     Dosage: 5 MG, UNK
     Dates: start: 201601

REACTIONS (6)
  - Upper respiratory tract infection [Unknown]
  - Urinary tract infection [Unknown]
  - Malaise [Unknown]
  - Sinusitis [Unknown]
  - Nasopharyngitis [Recovered/Resolved]
  - Bronchitis [Unknown]
